FAERS Safety Report 4453042-4 (Version None)
Quarter: 2004Q3

REPORT INFORMATION
  Report Type: 
  Country: None (occurrence: None)
  Receive Date: 20040916
  Receipt Date: 20040916
  Transmission Date: 20050211
  Serious: Yes (Other)
  Sender: FDA-Public Use
  Company Number: None

PATIENT
  Sex: Female
  Weight: 72.5755 kg

DRUGS (1)
  1. CLARAVIS [Suspect]
     Indication: ACNE
     Dosage: 40 MG TWICE DAILY ORAL
     Route: 048
     Dates: start: 20040525, end: 20040719

REACTIONS (4)
  - BLISTER [None]
  - ERYTHEMA [None]
  - FACIAL PAIN [None]
  - SWELLING FACE [None]
